FAERS Safety Report 18344256 (Version 1)
Quarter: 2020Q4

REPORT INFORMATION
  Report Type: Spontaneous
  Country: FR (occurrence: FR)
  Receive Date: 20201005
  Receipt Date: 20201005
  Transmission Date: 20210114
  Serious: Yes (Hospitalization)
  Sender: FDA-Public Use
  Company Number: FR-MYLANLABS-2020M1083037

PATIENT
  Age: 33 Year
  Sex: Male

DRUGS (6)
  1. AZATHIOPRINE. [Suspect]
     Active Substance: AZATHIOPRINE
     Dosage: 5 MG/KG
     Dates: start: 200301
  2. AZATHIOPRINE. [Suspect]
     Active Substance: AZATHIOPRINE
     Indication: CROHN^S DISEASE
     Dosage: 100 MG (2 MG/KG/DAY)
  3. PREDNISONE. [Suspect]
     Active Substance: PREDNISONE
     Indication: CROHN^S DISEASE
     Dosage: 10 MG, DAILY ( FOR SEVERAL MONTHS)
  4. AZATHIOPRINE. [Suspect]
     Active Substance: AZATHIOPRINE
     Dosage: 100 MG, DAILY
     Dates: start: 1993
  5. INFLIXIMAB [Suspect]
     Active Substance: INFLIXIMAB
     Indication: FISTULA
     Dosage: 5 MG/KG, EVERY 6 WEEKS (A TOTAL OF 7 COURSES)
     Dates: start: 200301
  6. INFLIXIMAB [Suspect]
     Active Substance: INFLIXIMAB
     Indication: CROHN^S DISEASE
     Dosage: THREE COURSES
     Dates: start: 200006

REACTIONS (6)
  - Thrombocytopenia [Recovering/Resolving]
  - Rash vesicular [Recovering/Resolving]
  - Varicella [Recovering/Resolving]
  - Off label use [Unknown]
  - Varicella zoster pneumonia [Recovering/Resolving]
  - Hepatitis [Recovering/Resolving]

NARRATIVE: CASE EVENT DATE: 200301
